FAERS Safety Report 4765839-1 (Version None)
Quarter: 2005Q3

REPORT INFORMATION
  Report Type: 
  Country: None (occurrence: None)
  Receive Date: 20050906
  Receipt Date: 20050825
  Transmission Date: 20060218
  Serious: Yes (Other)
  Sender: FDA-Public Use
  Company Number: 2005078335

PATIENT
  Age: 38 Year
  Sex: Female
  Weight: 90 kg

DRUGS (1)
  1. ALDACTONE [Suspect]
     Indication: HIRSUTISM
     Dosage: 75 MG (75 MG, DAILY), ORAL
     Route: 048
     Dates: start: 19990413, end: 20030901

REACTIONS (1)
  - BREAST CANCER FEMALE [None]
